FAERS Safety Report 9785277 (Version 2)
Quarter: 2013Q4

REPORT INFORMATION
  Report Type: Report from Study
  Country: JP (occurrence: JP)
  Receive Date: 20131227
  Receipt Date: 20131227
  Transmission Date: 20140711
  Serious: Yes (Death, Hospitalization, Other)
  Sender: FDA-Public Use
  Company Number: JP-009507513-2011SP039300

PATIENT
  Age: 44 Year
  Sex: Female
  Weight: 53 kg

DRUGS (46)
  1. TEMOZOLOMIDE [Suspect]
     Indication: ANAPLASTIC ASTROCYTOMA
     Dosage: 75 MG/M2, QD
     Route: 048
     Dates: start: 20070305, end: 20070415
  2. TEMOZOLOMIDE [Suspect]
     Dosage: 75 MG/M2, QD
     Route: 048
     Dates: start: 20070514, end: 20070518
  3. TEMOZOLOMIDE [Suspect]
     Dosage: 150 MG/M2, QD
     Route: 048
     Dates: start: 20070611, end: 20070615
  4. TEMOZOLOMIDE [Suspect]
     Dosage: 150 MG/M2, QD
     Route: 048
     Dates: start: 20070709, end: 20070713
  5. TEMOZOLOMIDE [Suspect]
     Dosage: 150 MG/M2, QD
     Route: 048
     Dates: start: 20070806, end: 20070810
  6. TEMOZOLOMIDE [Suspect]
     Dosage: 150 MG/M2, QD
     Route: 048
     Dates: start: 20070903, end: 20070907
  7. TEMOZOLOMIDE [Suspect]
     Dosage: 150 MG/M2, QD
     Route: 048
     Dates: start: 20071001, end: 20071005
  8. TEMOZOLOMIDE [Suspect]
     Dosage: 150 MG/M2, QD
     Route: 048
     Dates: start: 20071029, end: 20071102
  9. TEMOZOLOMIDE [Suspect]
     Dosage: 150 MG/M2, QD
     Route: 048
     Dates: start: 20071203, end: 20071207
  10. TEMOZOLOMIDE [Suspect]
     Dosage: 150 MG/M2, QD
     Route: 048
     Dates: start: 20080107, end: 20080111
  11. TEMOZOLOMIDE [Suspect]
     Dosage: 200 MG/M2, QD
     Route: 048
     Dates: start: 20080204, end: 20080208
  12. TEMOZOLOMIDE [Suspect]
     Dosage: 200 MG/M2, QD
     Route: 048
     Dates: start: 20080303, end: 20080307
  13. TEMOZOLOMIDE [Suspect]
     Dosage: 200 MG/M2, QD
     Route: 048
     Dates: start: 20080331, end: 20080404
  14. TEMOZOLOMIDE [Suspect]
     Dosage: 200 MG/M2, QD
     Route: 048
     Dates: start: 20080428, end: 20080502
  15. TEMOZOLOMIDE [Suspect]
     Dosage: 200 MG/M2, QD
     Route: 048
     Dates: start: 20080525, end: 20080530
  16. TEMOZOLOMIDE [Suspect]
     Dosage: 200 MG/M2, QD
     Route: 048
     Dates: start: 20080623, end: 20080627
  17. TEMOZOLOMIDE [Suspect]
     Dosage: 200 MG/M2, QD
     Route: 048
     Dates: start: 20080728, end: 20080801
  18. TEMOZOLOMIDE [Suspect]
     Dosage: 200 MG/M2, QD
     Route: 048
     Dates: start: 20080901, end: 20080905
  19. TEMOZOLOMIDE [Suspect]
     Dosage: 200 MG/M2, QD
     Route: 048
     Dates: start: 20080929, end: 20081003
  20. TEMOZOLOMIDE [Suspect]
     Dosage: 200 MG/M2, QD
     Route: 048
     Dates: start: 20081027, end: 20081031
  21. TEMOZOLOMIDE [Suspect]
     Dosage: 200 MG/M2, QD
     Route: 048
     Dates: start: 20081128, end: 20081202
  22. TEMOZOLOMIDE [Suspect]
     Dosage: 200 MG/M2, QD
     Route: 048
     Dates: start: 20081222, end: 20081226
  23. TEMOZOLOMIDE [Suspect]
     Dosage: 200 MG/M2, QD
     Route: 048
     Dates: start: 20090119, end: 20090123
  24. TEMOZOLOMIDE [Suspect]
     Dosage: 200 MG/M2, QD
     Route: 048
     Dates: start: 20090216, end: 20090220
  25. TEMOZOLOMIDE [Suspect]
     Dosage: 200 MG/M2, QD
     Route: 048
     Dates: start: 20090323, end: 20090327
  26. TEMOZOLOMIDE [Suspect]
     Dosage: 200 MG/M2, QD
     Route: 048
     Dates: start: 20090420, end: 20090424
  27. TEMOZOLOMIDE [Suspect]
     Dosage: 200 MG/M2, QD
     Route: 048
     Dates: start: 20090525, end: 20090529
  28. TEMOZOLOMIDE [Suspect]
     Dosage: 200 MG/M2, QD
     Route: 048
     Dates: start: 20090622, end: 20090626
  29. TEMOZOLOMIDE [Suspect]
     Dosage: 200 MG/M2, QD
     Route: 048
     Dates: start: 20090713, end: 20090717
  30. TEMOZOLOMIDE [Suspect]
     Dosage: 200 MG/M2, QD
     Route: 048
     Dates: start: 20090818, end: 20090822
  31. TEMOZOLOMIDE [Suspect]
     Dosage: 200 MG/M2, QD
     Route: 048
     Dates: start: 20090915, end: 20090919
  32. TEMOZOLOMIDE [Suspect]
     Dosage: 200 MG/M2, QD
     Route: 048
     Dates: start: 20091019, end: 20091023
  33. TEMOZOLOMIDE [Suspect]
     Dosage: 200 MG/M2, QD
     Route: 048
     Dates: start: 20091120, end: 20091124
  34. TEMOZOLOMIDE [Suspect]
     Dosage: 200 MG/M2, QD
     Route: 048
     Dates: start: 20091214, end: 20091218
  35. TEMOZOLOMIDE [Suspect]
     Dosage: 200 MG/M2, QD
     Route: 048
     Dates: start: 20100115, end: 20100119
  36. TEMOZOLOMIDE [Suspect]
     Dosage: 200 MG/M2, QD
     Route: 048
     Dates: start: 20100219, end: 20100223
  37. TEMOZOLOMIDE [Suspect]
     Dosage: 200 MG/M2, QD
     Route: 048
     Dates: start: 20100315, end: 20100319
  38. TEMOZOLOMIDE [Suspect]
     Dosage: 200 MG/M2, QD
     Route: 048
     Dates: start: 20100416, end: 20100420
  39. TEMOZOLOMIDE [Suspect]
     Dosage: 200 MG/M2, QD
     Route: 048
     Dates: start: 20100514, end: 20100518
  40. TEMOZOLOMIDE [Suspect]
     Dosage: 200 MG/M2, QD
     Route: 048
     Dates: start: 20100618, end: 20100622
  41. BAKTAR [Concomitant]
     Indication: ANTIFUNGAL PROPHYLAXIS
     Dosage: UNK
     Route: 048
     Dates: start: 20070330
  42. KYTRIL [Concomitant]
     Indication: PROPHYLAXIS
     Dosage: UNK
     Route: 048
     Dates: start: 20070305
  43. DEPAKENE [Concomitant]
     Route: 048
  44. MUCOSTA [Concomitant]
     Route: 048
  45. GASTER D [Concomitant]
     Dosage: UNK
     Route: 048
     Dates: end: 20070328
  46. INFLUENZA VIRUS VACCINE (UNSPECIFIED) [Concomitant]
     Indication: ANTIVIRAL PROPHYLAXIS
     Dosage: UNK
     Route: 058
     Dates: start: 20071113, end: 20071113

REACTIONS (6)
  - Rhabdomyolysis [Recovering/Resolving]
  - Disease progression [Fatal]
  - Lymphocyte count decreased [Not Recovered/Not Resolved]
  - White blood cell count decreased [Not Recovered/Not Resolved]
  - Urticaria [Recovered/Resolved]
  - Platelet count decreased [Not Recovered/Not Resolved]
